FAERS Safety Report 16941068 (Version 1)
Quarter: 2019Q4

REPORT INFORMATION
  Report Type: Spontaneous
  Country: US (occurrence: US)
  Receive Date: 20190828
  Receipt Date: 20190828
  Transmission Date: 20200122
  Serious: Yes (Other)
  Sender: FDA-Public Use
  Company Number: None

PATIENT
  Age: 38 Year
  Sex: Male
  Weight: 72.73 kg

DRUGS (1)
  1. ACYCLOVIR. [Suspect]
     Active Substance: ACYCLOVIR
     Indication: HERPES SIMPLEX MENINGITIS
     Route: 042
     Dates: start: 20190220, end: 20190221

REACTIONS (6)
  - Swelling face [None]
  - Pyrexia [None]
  - Pruritus [None]
  - Ear swelling [None]
  - Parotid gland enlargement [None]
  - Swelling [None]

NARRATIVE: CASE EVENT DATE: 20190220
